FAERS Safety Report 18452198 (Version 1)
Quarter: 2020Q4

REPORT INFORMATION
  Report Type: Spontaneous
  Country: US (occurrence: US)
  Receive Date: 20201101
  Receipt Date: 20201101
  Transmission Date: 20210114
  Serious: Yes (Other)
  Sender: FDA-Public Use
  Company Number: None

PATIENT
  Age: 53 Year
  Sex: Female
  Weight: 47.25 kg

DRUGS (1)
  1. SINGULAIR [Suspect]
     Active Substance: MONTELUKAST SODIUM
     Indication: CAPSULAR CONTRACTURE ASSOCIATED WITH BREAST IMPLANT
     Route: 048

REACTIONS (3)
  - Affect lability [None]
  - Suicidal ideation [None]
  - Product use in unapproved indication [None]

NARRATIVE: CASE EVENT DATE: 20180301
